FAERS Safety Report 14525054 (Version 4)
Quarter: 2019Q3

REPORT INFORMATION
  Report Type: Spontaneous
  Country: US (occurrence: US)
  Receive Date: 20180213
  Receipt Date: 20190715
  Transmission Date: 20191004
  Serious: Yes (Death, Hospitalization, Other)
  Sender: FDA-Public Use
  Company Number: US-ASTRAZENECA-2018SE18069

PATIENT
  Age: 26286 Day
  Sex: Male
  Weight: 112 kg

DRUGS (12)
  1. BENAZEPRIL [Concomitant]
     Active Substance: BENAZEPRIL HYDROCHLORIDE
  2. ZETIA [Concomitant]
     Active Substance: EZETIMIBE
  3. ACTOS [Concomitant]
     Active Substance: PIOGLITAZONE HYDROCHLORIDE
  4. IMDUR [Concomitant]
     Active Substance: ISOSORBIDE MONONITRATE
  5. LASIX [Concomitant]
     Active Substance: FUROSEMIDE
  6. WARFARIN [Concomitant]
     Active Substance: WARFARIN
  7. SYMBICORT [Concomitant]
     Active Substance: BUDESONIDE\FORMOTEROL FUMARATE DIHYDRATE
  8. METOPROLOL. [Concomitant]
     Active Substance: METOPROLOL
  9. AMARYL [Concomitant]
     Active Substance: GLIMEPIRIDE
  10. CRESTOR [Concomitant]
     Active Substance: ROSUVASTATIN CALCIUM
  11. ONGLYZA [Suspect]
     Active Substance: SAXAGLIPTIN HYDROCHLORIDE
     Indication: TYPE 2 DIABETES MELLITUS
     Route: 048
     Dates: start: 201511, end: 201602
  12. FLOMAX [Concomitant]
     Active Substance: TAMSULOSIN HYDROCHLORIDE

REACTIONS (8)
  - Cardiorenal syndrome [Fatal]
  - Acute left ventricular failure [Unknown]
  - Acute coronary syndrome [Fatal]
  - Aortic valve incompetence [Unknown]
  - Post cardiac arrest syndrome [Fatal]
  - Cardiac failure congestive [Unknown]
  - Cardiomyopathy [Unknown]
  - Acute kidney injury [Fatal]

NARRATIVE: CASE EVENT DATE: 20160122
